FAERS Safety Report 11079325 (Version 3)
Quarter: 2015Q2

REPORT INFORMATION
  Report Type: Report from Study
  Country: HU (occurrence: HU)
  Receive Date: 20150430
  Receipt Date: 20150525
  Transmission Date: 20150821
  Serious: Yes (Other)
  Sender: FDA-Public Use
  Company Number: HU-JNJFOC-20150418355

PATIENT
  Age: 65 Year
  Sex: Male
  Weight: 75 kg

DRUGS (5)
  1. ADAMON [Concomitant]
     Active Substance: TRAMADOL HYDROCHLORIDE
     Route: 065
  2. STELARA [Suspect]
     Active Substance: USTEKINUMAB
     Indication: PSORIASIS
     Route: 058
     Dates: start: 20141002, end: 20150122
  3. RENITEC NOS. [Concomitant]
     Route: 065
  4. CHINOTAL [Concomitant]
     Active Substance: PENTOXIFYLLINE
     Route: 065
  5. CATAFLAM [Concomitant]
     Active Substance: DICLOFENAC POTASSIUM
     Route: 065

REACTIONS (9)
  - Hypertension [Recovered/Resolved]
  - Aphasia [Recovered/Resolved]
  - Hypoaesthesia [Recovered/Resolved]
  - Dizziness [Recovered/Resolved]
  - Arrhythmia [Recovered/Resolved]
  - Speech disorder [Recovered/Resolved]
  - Facial paresis [Recovered/Resolved]
  - Gait disturbance [Recovered/Resolved]
  - Psoriasis [Recovered/Resolved]

NARRATIVE: CASE EVENT DATE: 201501
